FAERS Safety Report 24022614 (Version 1)
Quarter: 2024Q2

REPORT INFORMATION
  Report Type: Spontaneous
  Country: US (occurrence: US)
  Receive Date: 20240627
  Receipt Date: 20240627
  Transmission Date: 20240716
  Serious: No
  Sender: FDA-Public Use
  Company Number: US-ROCHE-3428819

PATIENT
  Sex: Female

DRUGS (1)
  1. ALECENSA [Suspect]
     Active Substance: ALECTINIB HYDROCHLORIDE
     Indication: Non-small cell lung cancer
     Route: 065

REACTIONS (8)
  - Dizziness [Not Recovered/Not Resolved]
  - Nasal congestion [Not Recovered/Not Resolved]
  - Fall [Unknown]
  - Head injury [Not Recovered/Not Resolved]
  - Eye contusion [Not Recovered/Not Resolved]
  - Malaise [Not Recovered/Not Resolved]
  - Back injury [Not Recovered/Not Resolved]
  - COVID-19 [Not Recovered/Not Resolved]
